FAERS Safety Report 16090265 (Version 1)
Quarter: 2019Q1

REPORT INFORMATION
  Report Type: Report from Study
  Country: None (occurrence: US)
  Receive Date: 20190319
  Receipt Date: 20190319
  Transmission Date: 20190418
  Serious: Yes (Death)
  Sender: FDA-Public Use
  Company Number: US-ABBVIE-19K-163-2708605-00

PATIENT
  Age: 79 Year
  Sex: Male

DRUGS (1)
  1. HUMIRA [Suspect]
     Active Substance: ADALIMUMAB
     Indication: CROHN^S DISEASE
     Route: 058

REACTIONS (6)
  - Atrial fibrillation [Unknown]
  - Blood pressure abnormal [Unknown]
  - Aortic stenosis [Unknown]
  - Fall [Unknown]
  - Death [Fatal]
  - Head injury [Unknown]

NARRATIVE: CASE EVENT DATE: 2019
